FAERS Safety Report 9789413 (Version 1)
Quarter: 2013Q4

REPORT INFORMATION
  Report Type: Spontaneous
  Country: DE (occurrence: DE)
  Receive Date: 20131231
  Receipt Date: 20131231
  Transmission Date: 20140711
  Serious: Yes (Other)
  Sender: FDA-Public Use
  Company Number: DE-ACTAVIS-2013-23694

PATIENT
  Sex: Male

DRUGS (1)
  1. SILDENAFIL (UNKNOWN) [Suspect]
     Indication: PRODUCT USED FOR UNKNOWN INDICATION
     Dosage: SINGLE-TIME
     Route: 048

REACTIONS (1)
  - Retinal vein occlusion [Unknown]
